FAERS Safety Report 7169742-1 (Version None)
Quarter: 2010Q4

REPORT INFORMATION
  Report Type: 
  Country: None (occurrence: None)
  Receive Date: 20101217
  Receipt Date: 20091102
  Transmission Date: 20110411
  Serious: No
  Sender: FDA-Public Use
  Company Number: A0829336A

PATIENT
  Age: 85 Year
  Sex: Male
  Weight: 81 kg

DRUGS (2)
  1. SORIATANE [Suspect]
     Indication: PSORIASIS
     Dosage: 25MG PER DAY
     Route: 048
     Dates: start: 20090501
  2. ANTIHYPERTENSIVES [Concomitant]

REACTIONS (3)
  - ALOPECIA [None]
  - ONYCHOCLASIS [None]
  - PRURITUS GENERALISED [None]
